FAERS Safety Report 8439357-3 (Version None)
Quarter: 2012Q2

REPORT INFORMATION
  Report Type: 
  Country: None (occurrence: None)
  Receive Date: 20120615
  Receipt Date: 20120612
  Transmission Date: 20120825
  Serious: Yes (Death)
  Sender: FDA-Public Use
  Company Number: PHEH2012US010795

PATIENT
  Sex: Male
  Weight: 74.8 kg

DRUGS (15)
  1. AMBIEN [Concomitant]
     Dosage: UNK
     Route: 048
  2. BENAZEPRIL HYDROCHLORIDE [Concomitant]
     Dosage: 1 DF, DAILY
     Route: 048
  3. AMLODIPINE BESYLATE [Concomitant]
     Dosage: 1 DF, UNK
     Route: 048
  4. POLYETHYLENE GLYCOL [Concomitant]
     Dosage: PACK, DAILY
     Route: 048
  5. PREVACID [Concomitant]
     Dosage: 1 DF, DAILY
  6. GLIPIZIDE [Concomitant]
     Dosage: 1 DF, DAILY
     Route: 048
  7. GLEEVEC [Suspect]
     Dosage: 200 MG, DAILY
     Route: 048
  8. DURAGESIC-100 [Concomitant]
     Dosage: PATCH 72 HR
     Route: 062
  9. MULTIVITAMIN [Concomitant]
     Dosage: 1 DF, DAILY
     Route: 048
  10. PROMETHAZINE [Concomitant]
     Dosage: 1 DF, PRN
     Route: 048
  11. VESICARE [Concomitant]
     Dosage: 1 DF, DAILY
     Route: 048
  12. SERTRALINE HYDROCHLORIDE [Concomitant]
     Dosage: 1 DF, DAILY
     Route: 048
  13. LASIX [Concomitant]
     Dosage: 1 DF, DAILY
     Route: 048
  14. GLEEVEC [Suspect]
     Indication: CHRONIC MYELOID LEUKAEMIA
     Dosage: 400 MG, DAILY
     Route: 048
  15. ASPIRIN [Concomitant]
     Dosage: 1 DF, DAILY
     Route: 048

REACTIONS (7)
  - DEATH [None]
  - NAUSEA [None]
  - GASTROOESOPHAGEAL REFLUX DISEASE [None]
  - THERAPEUTIC RESPONSE DECREASED [None]
  - BLOOD LACTATE DEHYDROGENASE INCREASED [None]
  - FATIGUE [None]
  - BLOOD PRESSURE SYSTOLIC INCREASED [None]
